FAERS Safety Report 7753079-3 (Version None)
Quarter: 2011Q3

REPORT INFORMATION
  Report Type: 
  Country: None (occurrence: None)
  Receive Date: 20110915
  Receipt Date: 20110810
  Transmission Date: 20111222
  Serious: Yes (Hospitalization)
  Sender: FDA-Public Use
  Company Number: IT-JNJFOC-20110806071

PATIENT
  Sex: Female

DRUGS (6)
  1. COUMADIN [Concomitant]
     Indication: ATRIAL FIBRILLATION
     Route: 065
     Dates: start: 19990101
  2. TRAMADOL HYDROCHLORIDE AND ACETAMINOPHEN [Suspect]
     Indication: OSTEOARTHRITIS
     Dosage: 4 IN 1 DAY
     Route: 065
     Dates: start: 20110720, end: 20110801
  3. MULTAQ [Concomitant]
     Route: 065
  4. ATORVASTATIN CALCIUM [Concomitant]
     Route: 065
  5. CACIT NOS [Concomitant]
     Route: 065
  6. KETOPROFEN [Suspect]
     Indication: OSTEOARTHRITIS
     Route: 048
     Dates: start: 20110709, end: 20110719

REACTIONS (2)
  - GASTRITIS [None]
  - ASTHENIA [None]
